FAERS Safety Report 6591244-1 (Version None)
Quarter: 2010Q1

REPORT INFORMATION
  Report Type: 
  Country: None (occurrence: None)
  Receive Date: 20100219
  Receipt Date: 20100215
  Transmission Date: 20100710
  Serious: Yes (Death, Other)
  Sender: FDA-Public Use
  Company Number: PHHY2010BR09178

PATIENT
  Age: 39 Month
  Sex: Male

DRUGS (6)
  1. CYCLOSPORINE [Suspect]
     Indication: CORD BLOOD TRANSPLANT THERAPY
  2. CYCLOSPORINE [Suspect]
     Indication: PROPHYLAXIS AGAINST GRAFT VERSUS HOST DISEASE
  3. STEROIDS NOS [Suspect]
     Indication: CORD BLOOD TRANSPLANT THERAPY
  4. STEROIDS NOS [Suspect]
     Indication: PROPHYLAXIS AGAINST GRAFT VERSUS HOST DISEASE
  5. BUSULFAN [Concomitant]
     Indication: CORD BLOOD TRANSPLANT THERAPY
  6. FLUDARABINE [Concomitant]
     Indication: CORD BLOOD TRANSPLANT THERAPY

REACTIONS (7)
  - ANAEMIA HAEMOLYTIC AUTOIMMUNE [None]
  - CHRONIC GRAFT VERSUS HOST DISEASE [None]
  - COMPLICATIONS OF BONE MARROW TRANSPLANT [None]
  - MALNUTRITION [None]
  - MICROSPORIDIA INFECTION [None]
  - SKIN INFECTION [None]
  - SYSTEMIC CANDIDA [None]
